FAERS Safety Report 25979845 (Version 1)
Quarter: 2025Q4

REPORT INFORMATION
  Report Type: Spontaneous
  Country: US (occurrence: None)
  Receive Date: 20251029
  Receipt Date: 20251029
  Transmission Date: 20260117
  Serious: Yes (Other)
  Sender: FDA-CTU
  Company Number: None

PATIENT
  Age: 75 Year
  Sex: Male
  Weight: 85.5 kg

DRUGS (3)
  1. OHTUVAYRE [Suspect]
     Active Substance: ENSIFENTRINE
     Indication: Product used for unknown indication
     Dosage: OTHER QUANTITY : 1 INHALATION(S);?FREQUENCY : TWICE A DAY;
     Route: 055
  2. ELIQUIS [Suspect]
     Active Substance: APIXABAN
  3. TRELEGY ELLIPTA [Suspect]
     Active Substance: FLUTICASONE FUROATE\UMECLIDINIUM BROMIDE\VILANTEROL TRIFENATATE

REACTIONS (3)
  - Vomiting [None]
  - Diarrhoea [None]
  - Back pain [None]

NARRATIVE: CASE EVENT DATE: 20251027
